FAERS Safety Report 7297905-3 (Version None)
Quarter: 2011Q1

REPORT INFORMATION
  Report Type: 
  Country: None (occurrence: None)
  Receive Date: 20110217
  Receipt Date: 20101216
  Transmission Date: 20110831
  Serious: No
  Sender: FDA-Public Use
  Company Number: US-KINGPHARMUSA00001-K201001521

PATIENT
  Age: 52 Year
  Sex: Female
  Weight: 58.957 kg

DRUGS (1)
  1. FLECTOR [Suspect]
     Indication: ARTHRALGIA
     Dosage: 1 PATCH DAILY, PRN
     Route: 061
     Dates: start: 20080101, end: 20101210

REACTIONS (1)
  - APPLICATION SITE RASH [None]
